FAERS Safety Report 5338922-X (Version None)
Quarter: 2007Q2

REPORT INFORMATION
  Report Type: 
  Country: None (occurrence: None)
  Receive Date: 20070530
  Receipt Date: 20070525
  Transmission Date: 20071010
  Serious: Yes (Hospitalization, Other)
  Sender: FDA-Public Use
  Company Number: US-ASTRAZENECA-2007UW12812

PATIENT
  Age: 939 Month
  Sex: Female
  Weight: 55.4 kg

DRUGS (19)
  1. OMEPRAZOLE [Suspect]
     Route: 048
  2. SUNITINIB MALATE [Suspect]
     Indication: SQUAMOUS CELL CARCINOMA
     Dosage: 50 MG QD 4 WEEKS ON, 2 WEEKS OFF
     Route: 048
     Dates: start: 20070221
  3. BIOTENE MOUTH RINSE [Concomitant]
  4. DIGITEK [Concomitant]
  5. FOSAMAX [Concomitant]
  6. HYDROCHLOROTHIAZIDE [Concomitant]
  7. HYDROCODONE BITARTRATE [Concomitant]
  8. ISOSORBIDE DN [Concomitant]
  9. LEVOTHYROXINE SODIUM [Concomitant]
  10. LIPITOR [Concomitant]
  11. LISINOPRIL [Concomitant]
     Route: 048
  12. LORAZEPAM [Concomitant]
  13. CORTISONE ACETATE [Concomitant]
     Dates: start: 20070219
  14. GLUCOSAMINE [Concomitant]
  15. MULTI-VITAMIN [Concomitant]
  16. OASIS MOUTH SPRAY [Concomitant]
     Route: 002
  17. OMEGA-3 FISH OIL [Concomitant]
  18. OSCAL [Concomitant]
  19. GLYCEROL 2.6% [Concomitant]

REACTIONS (4)
  - ABDOMINAL PAIN [None]
  - CHOLECYSTITIS [None]
  - FATIGUE [None]
  - VOMITING [None]
